FAERS Safety Report 8461828-4 (Version None)
Quarter: 2012Q2

REPORT INFORMATION
  Report Type: 
  Country: None (occurrence: None)
  Receive Date: 20120625
  Receipt Date: 20120621
  Transmission Date: 20120825
  Serious: Yes (Death)
  Sender: FDA-Public Use
  Company Number: FR-ASTRAZENECA-2012SE41910

PATIENT
  Age: 27762 Day
  Sex: Female

DRUGS (8)
  1. CRESTOR [Suspect]
     Route: 048
     Dates: end: 20120417
  2. IRBESARTAN [Suspect]
     Route: 048
     Dates: end: 20120417
  3. PENTOXIFYLLINE [Suspect]
     Indication: ATRIAL FIBRILLATION
     Dosage: 15 MG EVERY OTHER DAY AND 10 MG EVERY OTHER DAY
     Route: 048
     Dates: end: 20120417
  4. AMIODARONE HCL [Suspect]
     Route: 048
     Dates: end: 20120417
  5. LAMOTRIGINE [Suspect]
     Dosage: 100 MG IN THE MORNING, 50 MG AT LUNCH TIME AND 100 MG IN THE EVENING
     Route: 048
     Dates: end: 20120417
  6. XANAX [Suspect]
     Route: 048
     Dates: end: 20120417
  7. ACETAMINOPHEN [Concomitant]
     Route: 048
  8. PAROXETINE [Suspect]
     Route: 048
     Dates: end: 20120417

REACTIONS (2)
  - CEREBRAL HAEMORRHAGE [None]
  - COMA [None]
